FAERS Safety Report 4976162-4 (Version None)
Quarter: 2006Q2

REPORT INFORMATION
  Report Type: 
  Country: None (occurrence: None)
  Receive Date: 20060411
  Receipt Date: 20060405
  Transmission Date: 20061013
  Serious: Yes (Hospitalization, Other)
  Sender: FDA-Public Use
  Company Number: HQWYE673306APR06

PATIENT
  Age: 44 Year
  Sex: Female

DRUGS (1)
  1. INDERAL [Suspect]
     Indication: HYPERTENSION
     Dosage: 1 DOSAGE FORM 1X PER 1 DAY, ORAL
     Route: 048
     Dates: start: 20060228, end: 20060316

REACTIONS (1)
  - PITYRIASIS ROSEA [None]
